FAERS Safety Report 24326874 (Version 2)
Quarter: 2025Q2

REPORT INFORMATION
  Report Type: Spontaneous
  Country: CN (occurrence: CN)
  Receive Date: 20240917
  Receipt Date: 20250608
  Transmission Date: 20250716
  Serious: Yes (Hospitalization)
  Sender: COHERUS
  Company Number: CN-SHANGHAI JUNSHI BIOSCIENCES CO., LTD.-CN2024011332

PATIENT

DRUGS (4)
  1. TORIPALIMAB [Suspect]
     Active Substance: TORIPALIMAB
     Indication: Hepatic cancer
     Route: 041
     Dates: start: 20240713, end: 20240713
  2. OXALIPLATIN [Suspect]
     Active Substance: OXALIPLATIN
     Indication: Hepatic cancer
     Route: 041
     Dates: start: 20240713, end: 20240713
  3. PACLITAXEL [Suspect]
     Active Substance: PACLITAXEL
     Indication: Hepatic cancer
     Route: 041
     Dates: start: 20240713, end: 20240713
  4. PACLITAXEL [Suspect]
     Active Substance: PACLITAXEL
     Route: 041
     Dates: start: 20240720, end: 20240720

REACTIONS (2)
  - Myelosuppression [Recovered/Resolved]
  - Off label use [Unknown]

NARRATIVE: CASE EVENT DATE: 20240713
